FAERS Safety Report 18488140 (Version 2)
Quarter: 2024Q3

REPORT INFORMATION
  Report Type: Spontaneous
  Country: US (occurrence: US)
  Receive Date: 20201110
  Receipt Date: 20240905
  Transmission Date: 20241017
  Serious: Yes (Other)
  Sender: JOHNSON AND JOHNSON
  Company Number: US-JNJFOC-20201100147

PATIENT

DRUGS (2)
  1. VELETRI [Suspect]
     Active Substance: EPOPROSTENOL
     Indication: Hypoxia
     Dosage: 0.05 G/KG/MIN (10ML/HR INTO THE NEBLIZER CUP)
     Route: 055
  2. VELETRI [Suspect]
     Active Substance: EPOPROSTENOL
     Indication: Right ventricular failure

REACTIONS (8)
  - Cardiac arrest [Unknown]
  - Pulmonary arterial pressure increased [Unknown]
  - Drug delivery system malfunction [Unknown]
  - Hypotension [Unknown]
  - Hypoxia [Unknown]
  - Central venous pressure [Unknown]
  - Product use in unapproved indication [Unknown]
  - Off label use [Unknown]
